FAERS Safety Report 9816088 (Version 1)
Quarter: 2014Q1

REPORT INFORMATION
  Report Type: Spontaneous
  Country: US (occurrence: US)
  Receive Date: 20140114
  Receipt Date: 20140114
  Transmission Date: 20141002
  Serious: Yes (Death)
  Sender: FDA-Public Use
  Company Number: US-PFIZER INC-2014006827

PATIENT
  Age: 86 Year
  Sex: Female

DRUGS (9)
  1. AMLODIPINE BESILATE [Suspect]
     Dosage: UNK
     Route: 048
  2. DOXAZOSIN MESILATE [Suspect]
     Dosage: UNK
     Route: 048
  3. FUROSEMIDE [Suspect]
     Dosage: UNK
     Route: 048
  4. LEVOTHYROXINE SODIUM [Suspect]
     Dosage: UNK
     Route: 048
  5. ACETAMINOPHEN/ HYDROCODONE [Suspect]
     Dosage: UNK
     Route: 048
  6. ISOSORBIDE MONONITRATE [Suspect]
     Dosage: UNK
     Route: 048
  7. ESCITALOPRAM [Suspect]
     Dosage: UNK
     Route: 048
  8. WARFARIN [Suspect]
     Dosage: UNK
     Route: 048
  9. POTASSIUM [Suspect]
     Dosage: UNK
     Route: 048

REACTIONS (1)
  - Completed suicide [Fatal]
